FAERS Safety Report 16057107 (Version 1)
Quarter: 2019Q2

REPORT INFORMATION
  Report Type: Spontaneous
  Country: US (occurrence: US)
  Receive Date: 20190308
  Receipt Date: 20190308
  Transmission Date: 20190711
  Serious: Yes (Death)
  Sender: FDA-Public Use
  Company Number: None

PATIENT
  Age: 76 Year
  Sex: Male
  Weight: 79.38 kg

DRUGS (3)
  1. ERTAPENEM, 1 GM [Suspect]
     Active Substance: ERTAPENEM
     Indication: URINARY TRACT INFECTION
     Route: 041
     Dates: start: 20190214, end: 20190226
  2. SODIUM CHLORIDE. [Concomitant]
     Active Substance: SODIUM CHLORIDE
  3. STERILE WATER [Concomitant]
     Active Substance: WATER

REACTIONS (3)
  - Infusion related reaction [None]
  - Limb discomfort [None]
  - Muscle fatigue [None]

NARRATIVE: CASE EVENT DATE: 20190228
